FAERS Safety Report 7491331-X (Version None)
Quarter: 2011Q2

REPORT INFORMATION
  Report Type: 
  Country: None (occurrence: None)
  Receive Date: 20110519
  Receipt Date: 20110513
  Transmission Date: 20111010
  Serious: Yes (Hospitalization)
  Sender: FDA-Public Use
  Company Number: US-GILEAD-2011-0037101

PATIENT
  Age: 64 Year
  Sex: Female

DRUGS (3)
  1. LETAIRIS [Suspect]
     Indication: PULMONARY HYPERTENSION
     Route: 048
     Dates: start: 20110131
  2. LETAIRIS [Suspect]
     Indication: PULMONARY EMBOLISM
  3. LETAIRIS [Suspect]
     Indication: CARDIAC VALVE DISEASE

REACTIONS (2)
  - ASTHENIA [None]
  - DYSPNOEA [None]
